FAERS Safety Report 15717444 (Version 1)
Quarter: 2018Q4

REPORT INFORMATION
  Report Type: Spontaneous
  Country: GB (occurrence: GB)
  Receive Date: 20181213
  Receipt Date: 20181213
  Transmission Date: 20190205
  Serious: Yes (Other)
  Sender: FDA-Public Use
  Company Number: GB-ASTRAZENECA-2018SE97955

PATIENT
  Age: 53 Year
  Sex: Female
  Weight: 51.5 kg

DRUGS (2)
  1. LYNPARZA [Suspect]
     Active Substance: OLAPARIB
     Indication: OVARIAN CANCER
     Route: 048
     Dates: start: 20180521, end: 20180612
  2. LYNPARZA [Suspect]
     Active Substance: OLAPARIB
     Indication: OVARIAN CANCER
     Route: 048
     Dates: start: 20180628, end: 20180704

REACTIONS (17)
  - Emotional disorder [Not Recovered/Not Resolved]
  - Eye swelling [Unknown]
  - Neutrophil count decreased [Not Recovered/Not Resolved]
  - Burning sensation [Unknown]
  - Swelling face [Unknown]
  - Rash [Not Recovered/Not Resolved]
  - Fatigue [Not Recovered/Not Resolved]
  - Dysgeusia [Unknown]
  - Swelling [Unknown]
  - Headache [Unknown]
  - Pruritus [Unknown]
  - Dyspnoea [Not Recovered/Not Resolved]
  - Haemoglobin abnormal [Unknown]
  - Blister [Not Recovered/Not Resolved]
  - Platelet count abnormal [Unknown]
  - Nausea [Unknown]
  - Decreased appetite [Unknown]

NARRATIVE: CASE EVENT DATE: 20180523
